FAERS Safety Report 5860355-8 (Version None)
Quarter: 2008Q3

REPORT INFORMATION
  Report Type: 
  Country: None (occurrence: None)
  Receive Date: 20080827
  Receipt Date: 20070731
  Transmission Date: 20090109
  Serious: No
  Sender: FDA-Public Use
  Company Number: US-ABBOTT-07P-163-0376147-00

PATIENT
  Sex: Male
  Weight: 74.456 kg

DRUGS (5)
  1. COATED PDS [Suspect]
     Indication: HIGH DENSITY LIPOPROTEIN INCREASED
     Dosage: WHITE
     Route: 048
     Dates: start: 20070717
  2. COATED PDS [Suspect]
     Dosage: ORANGE
     Route: 048
     Dates: start: 20050101, end: 20070716
  3. ACETYLSALICYLIC ACID SRT [Concomitant]
     Indication: DRUG USE FOR UNKNOWN INDICATION
  4. ENALAPRIL MALEATE [Concomitant]
     Indication: DRUG USE FOR UNKNOWN INDICATION
  5. LOTRIL GENERIC [Concomitant]
     Indication: DRUG USE FOR UNKNOWN INDICATION
     Dosage: 5/10MG (TOTAL DAILY DOSE)

REACTIONS (2)
  - FEELING ABNORMAL [None]
  - MOVEMENT DISORDER [None]
